FAERS Safety Report 23248497 (Version 2)
Quarter: 2023Q4

REPORT INFORMATION
  Report Type: Spontaneous
  Country: US (occurrence: US)
  Receive Date: 20231201
  Receipt Date: 20231218
  Transmission Date: 20240110
  Serious: Yes (Hospitalization, Other)
  Sender: FDA-Public Use
  Company Number: US-AUROBINDO-AUR-APL-2023-074628

PATIENT
  Age: 23 Year
  Sex: Male

DRUGS (14)
  1. GUANFACINE [Interacting]
     Active Substance: GUANFACINE
     Indication: Schizoaffective disorder
     Dosage: UNK
     Route: 065
  2. KETAMINE HYDROCHLORIDE [Interacting]
     Active Substance: KETAMINE HYDROCHLORIDE
     Indication: Schizoaffective disorder
     Dosage: UNK
     Route: 065
  3. LORAZEPAM [Interacting]
     Active Substance: LORAZEPAM
     Indication: Schizoaffective disorder
     Dosage: UNK
     Route: 065
  4. LORAZEPAM [Interacting]
     Active Substance: LORAZEPAM
     Indication: Antipsychotic therapy
  5. QUETIAPINE [Interacting]
     Active Substance: QUETIAPINE
     Indication: Schizoaffective disorder
     Dosage: UNK
     Route: 065
  6. QUETIAPINE [Interacting]
     Active Substance: QUETIAPINE
     Indication: Antipsychotic therapy
  7. HALOPERIDOL [Interacting]
     Active Substance: HALOPERIDOL
     Indication: Schizoaffective disorder
     Dosage: UNK
     Route: 065
  8. HALOPERIDOL [Interacting]
     Active Substance: HALOPERIDOL
     Indication: Antipsychotic therapy
  9. LITHIUM [Interacting]
     Active Substance: LITHIUM
     Indication: Schizoaffective disorder
     Dosage: UNK
     Route: 065
  10. LITHIUM [Interacting]
     Active Substance: LITHIUM
     Indication: Schizoaffective disorder bipolar type
  11. PALIPERIDONE [Interacting]
     Active Substance: PALIPERIDONE
     Indication: Schizoaffective disorder
     Dosage: UNK
     Route: 065
  12. PALIPERIDONE [Interacting]
     Active Substance: PALIPERIDONE
     Indication: Antipsychotic therapy
  13. PROPOFOL [Interacting]
     Active Substance: PROPOFOL
     Indication: Schizoaffective disorder
     Dosage: UNK
     Route: 065
  14. VALPROATE [Interacting]
     Active Substance: VALPROIC ACID
     Indication: Schizoaffective disorder
     Dosage: UNK
     Route: 065

REACTIONS (2)
  - Nephrogenic diabetes insipidus [Recovered/Resolved]
  - Drug interaction [Unknown]
